FAERS Safety Report 11697178 (Version 1)
Quarter: 2015Q4

REPORT INFORMATION
  Report Type: Spontaneous
  Country: PT (occurrence: PT)
  Receive Date: 20151104
  Receipt Date: 20151104
  Transmission Date: 20160304
  Serious: Yes (Disabling)
  Sender: FDA-Public Use
  Company Number: PT-009507513-1510PRT015293

PATIENT
  Age: 24 Year
  Sex: Female

DRUGS (2)
  1. IMPLANON [Suspect]
     Active Substance: ETONOGESTREL
     Indication: CONTRACEPTION
     Dosage: 1 DF, ONCE
     Route: 058
     Dates: start: 20141002
  2. DROSPIRENONE (+) ETHINYL ESTRADIOL [Interacting]
     Active Substance: DROSPIRENONE\ETHINYL ESTRADIOL
     Indication: OVARIAN CYST
     Dosage: 1 DF, QD
     Route: 048
     Dates: start: 20150703, end: 20150707

REACTIONS (4)
  - Dyspnoea [Recovered/Resolved]
  - Drug interaction [None]
  - Respiratory arrest [None]
  - Anxiety [Recovered/Resolved]

NARRATIVE: CASE EVENT DATE: 20150706
